FAERS Safety Report 8593067-0 (Version None)
Quarter: 2012Q3

REPORT INFORMATION
  Report Type: 
  Country: None (occurrence: None)
  Receive Date: 20120814
  Receipt Date: 20120809
  Transmission Date: 20120928
  Serious: Yes (Hospitalization)
  Sender: FDA-Public Use
  Company Number: FR-GLAXOSMITHKLINE-B0821703A

PATIENT
  Age: 3 Year
  Sex: Female
  Weight: 13 kg

DRUGS (5)
  1. CLAFORAN [Concomitant]
     Route: 042
  2. ACETAMINOPHEN [Concomitant]
     Route: 042
  3. IBUPROFEN [Concomitant]
     Route: 048
  4. CLOBAZAM [Concomitant]
     Route: 048
  5. ZOVIRAX [Suspect]
     Indication: ENCEPHALITIS
     Dosage: 250MG THREE TIMES PER DAY
     Route: 042
     Dates: start: 20120616, end: 20120618

REACTIONS (3)
  - AGITATION [None]
  - HALLUCINATION [None]
  - EMOTIONAL DISTRESS [None]
